FAERS Safety Report 19806211 (Version 1)
Quarter: 2021Q3

REPORT INFORMATION
  Report Type: Spontaneous
  Country: FR (occurrence: FR)
  Receive Date: 20210909
  Receipt Date: 20210909
  Transmission Date: 20211014
  Serious: Yes (Other)
  Sender: FDA-Public Use
  Company Number: FR-ACS-002083

PATIENT
  Age: 74 Year
  Sex: Female

DRUGS (2)
  1. CEFTAZIDIME. [Suspect]
     Active Substance: CEFTAZIDIME
     Route: 031
  2. VANCOMYCIN [Suspect]
     Active Substance: VANCOMYCIN
     Route: 031

REACTIONS (3)
  - Vitreous opacities [Unknown]
  - Product deposit [Unknown]
  - Off label use [Unknown]
